FAERS Safety Report 7386699 (Version 4)
Quarter: 2012Q4

REPORT INFORMATION
  Report Type: Report from Study
  Country: US (occurrence: US)
  Receive Date: 20100513
  Receipt Date: 20121003
  Transmission Date: 20130627
  Serious: Yes (Hospitalization, Other)
  Sender: FDA-Public Use
  Company Number: US-CELGENEUS-163-21880-10050223

PATIENT
  Age: 87 Year
  Sex: Male
  Weight: 76 kg

DRUGS (4)
  1. REVLIMID [Suspect]
     Indication: MULTIPLE MYELOMA
     Dosage: 10 Milligram
     Route: 048
     Dates: start: 20100416, end: 20100430
  2. MELPHALAN [Suspect]
     Indication: MULTIPLE MYELOMA
     Dosage: 5 milligram/sq. meter
     Route: 048
     Dates: start: 20100416, end: 20100419
  3. PREDNISONE [Suspect]
     Indication: MULTIPLE MYELOMA
     Dosage: 100 Milligram
     Route: 048
     Dates: start: 20100416, end: 20100419
  4. ASPIRIN [Concomitant]
     Indication: DRUG USE FOR UNKNOWN INDICATION
     Dosage: 325 Milligram
     Route: 048
     Dates: start: 20100414

REACTIONS (10)
  - Acidosis [Not Recovered/Not Resolved]
  - Hypoalbuminaemia [Unknown]
  - Hypoxia [Not Recovered/Not Resolved]
  - Hypophosphataemia [Not Recovered/Not Resolved]
  - Hypocalcaemia [Not Recovered/Not Resolved]
  - Pulmonary embolism [Not Recovered/Not Resolved]
  - Pneumonia [Not Recovered/Not Resolved]
  - Small intestinal haemorrhage [Unknown]
  - Back pain [Not Recovered/Not Resolved]
  - Depression [Unknown]
